FAERS Safety Report 7048596-8 (Version None)
Quarter: 2010Q4

REPORT INFORMATION
  Report Type: 
  Country: None (occurrence: None)
  Receive Date: 20101018
  Receipt Date: 20101006
  Transmission Date: 20110411
  Serious: Yes (Hospitalization)
  Sender: FDA-Public Use
  Company Number: JP-BAYER-201014992BYL

PATIENT
  Age: 80 Year
  Sex: Male
  Weight: 67 kg

DRUGS (4)
  1. ASPIRIN [Suspect]
     Indication: THROMBOSIS PROPHYLAXIS
     Route: 048
  2. CLOPIDOGREL [Suspect]
     Indication: THROMBOSIS PROPHYLAXIS
     Route: 048
  3. HEPARIN [Suspect]
     Indication: THROMBOSIS PROPHYLAXIS
     Route: 065
  4. HEPARIN [Suspect]
     Route: 065

REACTIONS (1)
  - VASCULAR PSEUDOANEURYSM [None]
